FAERS Safety Report 4610000-4 (Version None)
Quarter: 2005Q1

REPORT INFORMATION
  Report Type: 
  Country: None (occurrence: None)
  Receive Date: 20050315
  Receipt Date: 20050302
  Transmission Date: 20050727
  Serious: Yes (Hospitalization)
  Sender: FDA-Public Use
  Company Number: HQWYE765302MAR05

PATIENT
  Age: 60 Year
  Sex: Female

DRUGS (9)
  1. CORDARONE [Suspect]
     Dosage: 250 UNIT DOSE; DAILY; ORAL
     Route: 048
  2. AMLOR (AMLODIPINE BESILATE,) [Suspect]
     Dosage: 5 MG UNIT DOSE; DAILY, ORAL
     Route: 048
  3. ASPEGIC 1000 [Suspect]
     Indication: CORONARY ARTERY STENOSIS
     Dosage: 250 MG 1X PER 1 DAY, ORAL
     Route: 048
     Dates: start: 20030701
  4. NITROGLYCERIN [Suspect]
     Dosage: TRANSDERMAL
     Route: 062
  5. PRAVASTATIN [Suspect]
     Dosage: ORAL
     Route: 048
  6. FUROSEMIDE [Suspect]
     Dosage: 500 MG , ORAL
     Route: 048
  7. OMEPRAZOLE [Concomitant]
  8. XANAX [Concomitant]
  9. ATARAX [Concomitant]

REACTIONS (4)
  - CYANOSIS [None]
  - EOSINOPHILIA [None]
  - FAT EMBOLISM [None]
  - RETINAL ARTERY EMBOLISM [None]
